FAERS Safety Report 20778961 (Version 1)
Quarter: 2022Q2

REPORT INFORMATION
  Report Type: Spontaneous
  Country: US (occurrence: US)
  Receive Date: 20220503
  Receipt Date: 20220503
  Transmission Date: 20220721
  Serious: No
  Sender: FDA-Public Use
  Company Number: US-PFIZER INC-202101713735

PATIENT
  Age: 87 Year
  Sex: Female

DRUGS (1)
  1. LYRICA [Suspect]
     Active Substance: PREGABALIN
     Dosage: 1 DF, 3X/DAY
     Route: 048

REACTIONS (8)
  - Dizziness [Unknown]
  - Somnolence [Unknown]
  - Dry mouth [Unknown]
  - Swelling [Unknown]
  - Vision blurred [Unknown]
  - Weight increased [Unknown]
  - Disturbance in attention [Unknown]
  - Euphoric mood [Unknown]
